FAERS Safety Report 7943040-8 (Version None)
Quarter: 2011Q4

REPORT INFORMATION
  Report Type: 
  Country: None (occurrence: None)
  Receive Date: 20111128
  Receipt Date: 20111124
  Transmission Date: 20120403
  Serious: Yes (Hospitalization)
  Sender: FDA-Public Use
  Company Number: NZ-B.I. PHARMACEUTICALS,INC./RIDGEFIELD-2011-AU-01983AU

PATIENT
  Sex: Male
  Weight: 75 kg

DRUGS (7)
  1. CILAZAPRIL [Concomitant]
     Dosage: 0.25 MG
  2. PRADAXA [Suspect]
     Indication: ATRIAL FIBRILLATION
     Dosage: 220 MG
     Dates: start: 20110706, end: 20111001
  3. SPIRONOLACTONE [Concomitant]
     Dosage: 25 MG
  4. FUROSEMIDE [Concomitant]
     Dosage: 160 MG
  5. CLOPIDOGREL [Concomitant]
     Dosage: 75 MG
  6. MORPHINE SULFATE [Concomitant]
     Dosage: 5 MG
  7. QUETIAPINE [Concomitant]
     Dosage: 50 MG

REACTIONS (4)
  - EPISTAXIS [None]
  - RENAL IMPAIRMENT [None]
  - CONTUSION [None]
  - FALL [None]
